FAERS Safety Report 18788919 (Version 3)
Quarter: 2021Q1

REPORT INFORMATION
  Report Type: Report from Study
  Country: GB (occurrence: GB)
  Receive Date: 20210126
  Receipt Date: 20210225
  Transmission Date: 20210419
  Serious: Yes (Hospitalization, Other)
  Sender: FDA-Public Use
  Company Number: GB-MYLANLABS-2019M1086236

PATIENT
  Age: 35 Year
  Sex: Female

DRUGS (31)
  1. DOCETAXEL. [Suspect]
     Active Substance: DOCETAXEL
     Indication: BREAST CANCER METASTATIC
     Dosage: 140 MILLIGRAM, Q3W(DISCONTINUED DUE TO MUSCULOSKELETAL SYMPTOMS)
     Route: 042
     Dates: start: 20160812, end: 20160812
  2. AMLODIPINE [Concomitant]
     Active Substance: AMLODIPINE BESYLATE
     Indication: ABDOMINAL PAIN
     Dosage: 5 MILLIGRAM, QD
     Route: 048
     Dates: start: 20201217
  3. TRASTUZUMAB. [Suspect]
     Active Substance: TRASTUZUMAB
     Indication: HER2 POSITIVE BREAST CANCER
     Dosage: 567 MILLIGRAM, TOTAL(LOADING DOSE DOSE MODIFIED AS SWITCHED TO MAINTANANCE DOSE)
     Route: 042
     Dates: start: 20160722, end: 20160722
  4. CAPECITABINE. [Suspect]
     Active Substance: CAPECITABINE
     Indication: BREAST CANCER METASTATIC
     Dosage: 1950 MILLIGRAM, BID
     Route: 048
     Dates: start: 20180905, end: 20190327
  5. PERTUZUMAB. [Suspect]
     Active Substance: PERTUZUMAB
     Indication: HER2 POSITIVE BREAST CANCER
     Dosage: 840 MILLIGRAM, TOTAL(LOADING DOSE DOSE MODIFIED AS SWITCHED TO MAINTENACE DOSE)
     Route: 042
     Dates: start: 20160721, end: 20160721
  6. DOCETAXEL. [Suspect]
     Active Substance: DOCETAXEL
     Indication: HER2 POSITIVE BREAST CANCER
     Dosage: 105 MILLIGRAM, Q3W(DOSE MODIFIED DUE TO MUSCULOSKELETAL SYMPTOMS)
     Route: 042
     Dates: start: 20160723, end: 20160723
  7. DOCETAXEL. [Suspect]
     Active Substance: DOCETAXEL
     Dosage: 190 MILLIGRAM, Q3W(DOSE DISCONTINUED AS PLANNED NUMBER OF CYCLES COMPLETED)
     Route: 042
     Dates: start: 20160902, end: 20161115
  8. CLOTRIMAZOLE. [Concomitant]
     Active Substance: CLOTRIMAZOLE
     Indication: ABDOMINAL PAIN
     Dosage: 1 PERCENT
     Route: 061
     Dates: start: 20201216
  9. MIDAZOLAM. [Concomitant]
     Active Substance: MIDAZOLAM
     Indication: ABDOMINAL PAIN
     Dosage: 2.5 MILLIGRAM
     Route: 058
  10. SODIUM CHLORIDE. [Concomitant]
     Active Substance: SODIUM CHLORIDE
     Indication: ABDOMINAL PAIN
     Dosage: 0.9 PERCENT
     Route: 042
     Dates: start: 20201215
  11. TRASTUZUMAB. [Suspect]
     Active Substance: TRASTUZUMAB
     Indication: BREAST CANCER METASTATIC
     Dosage: 420 MILLIGRAM, Q3W(DOSE MODIFIED AS ACCOUNT FOR WEIGHT CHANGE)
     Route: 041
     Dates: start: 20160812, end: 20161017
  12. XGEVA [Suspect]
     Active Substance: DENOSUMAB
     Indication: METASTASES TO BONE
     Dosage: 120 MILLIGRAM, Q3W
     Route: 042
     Dates: start: 20160721
  13. EPIRUBICIN [Concomitant]
     Active Substance: EPIRUBICIN
     Indication: BREAST CANCER METASTATIC
     Dosage: 22.5 MILLIGRAM/SQ. METER, QW
     Route: 042
     Dates: start: 20200512, end: 20200820
  14. LEVOMEPROMAZINE [Concomitant]
     Active Substance: LEVOMEPROMAZINE
     Indication: ABDOMINAL PAIN
     Dosage: 3.13 MILLIGRAM
     Route: 058
  15. VENLAFAXINE [Concomitant]
     Active Substance: VENLAFAXINE HYDROCHLORIDE
     Indication: ABDOMINAL PAIN
     Dosage: 75 MILLIGRAM, BID
     Route: 048
     Dates: start: 20201215
  16. BENZYDAMINE [Concomitant]
     Active Substance: BENZYDAMINE
     Dosage: 0.15 PERCENT, QID
     Route: 048
  17. OXYCODONE [Concomitant]
     Active Substance: OXYCODONE
     Indication: ABDOMINAL PAIN
     Dosage: 10 MILLIGRAM
     Route: 058
  18. HALOPERIDOL. [Concomitant]
     Active Substance: HALOPERIDOL
     Indication: ABDOMINAL PAIN
     Dosage: 0.5 MILLIGRAM
     Route: 058
  19. LORAZEPAM. [Concomitant]
     Active Substance: LORAZEPAM
     Indication: ABDOMINAL PAIN
     Dosage: 1 MILLIGRAM, QD
     Route: 048
     Dates: start: 20201215
  20. TRASTUZUMAB. [Suspect]
     Active Substance: TRASTUZUMAB
     Dosage: 3.6 MILLIGRAM/SQ. METER, Q3W
     Route: 042
     Dates: start: 20171212
  21. GLYCOPYRRONIUM [Concomitant]
     Active Substance: GLYCOPYRRONIUM
     Indication: DYSPNOEA
     Dosage: 200 MILLIGRAM
     Route: 058
  22. TRASTUZUMAB. [Suspect]
     Active Substance: TRASTUZUMAB
     Dosage: 441 MILLIGRAM, Q3W
     Route: 042
     Dates: start: 20161115, end: 20171116
  23. TRASTUZUMAB EMTANSINE [Suspect]
     Active Substance: ADO-TRASTUZUMAB EMTANSINE
     Indication: BREAST CANCER METASTATIC
     Dosage: 3.6 MILLIGRAM/SQ. METER, Q3W, 3.6 MILLIGRAM/SQ. METER, Q3WK
     Route: 042
     Dates: start: 20171212
  24. LANSOPRAZOLE. [Concomitant]
     Active Substance: LANSOPRAZOLE
     Indication: ABDOMINAL PAIN
     Dosage: 30 MILLIGRAM, QD
     Route: 048
     Dates: start: 20201215
  25. DOCUSATE [Concomitant]
     Active Substance: DOCUSATE
     Indication: ABDOMINAL PAIN
     Dosage: 200 MILLIGRAM, BID
     Route: 048
     Dates: start: 20201215
  26. PERTUZUMAB. [Suspect]
     Active Substance: PERTUZUMAB
     Indication: BREAST CANCER METASTATIC
     Dosage: 420 MILLIGRAM, Q3W(MAINTENANCE DOSE)
     Route: 042
     Dates: start: 20160811
  27. DEXAMETHASONE. [Concomitant]
     Active Substance: DEXAMETHASONE
     Indication: ABDOMINAL PAIN
     Dosage: 6 MILLIGRAM, QD
     Route: 048
     Dates: start: 20201215
  28. ERIBULIN MESYLATE [Suspect]
     Active Substance: ERIBULIN MESYLATE
     Indication: BREAST CANCER METASTATIC
     Dosage: 1.23 MILLIGRAM/SQ. METER, Q3W
     Route: 042
     Dates: start: 20190516, end: 20190516
  29. SALBUTAMOL [Concomitant]
     Active Substance: ALBUTEROL
     Indication: DYSPNOEA
     Dosage: 100 MICROGRAM, QID
     Route: 055
  30. BECLOMETASONE [Concomitant]
     Active Substance: BECLOMETHASONE DIPROPIONATE
     Dosage: 200 MILLIGRAM, BID
     Route: 055
  31. GABAPENTIN. [Concomitant]
     Active Substance: GABAPENTIN
     Indication: ABDOMINAL PAIN
     Dosage: 400 MILLIGRAM, TID
     Route: 048
     Dates: start: 20201215

REACTIONS (4)
  - Intentional product use issue [Unknown]
  - Off label use [Unknown]
  - Headache [Recovered/Resolved]
  - Pyrexia [Recovered/Resolved]

NARRATIVE: CASE EVENT DATE: 20190113
